FAERS Safety Report 25918983 (Version 2)
Quarter: 2025Q4

REPORT INFORMATION
  Report Type: Spontaneous
  Country: US (occurrence: US)
  Receive Date: 20251014
  Receipt Date: 20251110
  Transmission Date: 20260118
  Serious: Yes (Disabling, Other)
  Sender: REGENERON
  Company Number: US-REGENERON PHARMACEUTICALS, INC.-2025-145197

PATIENT
  Age: 65 Year
  Sex: Female

DRUGS (3)
  1. EYLEA [Suspect]
     Active Substance: AFLIBERCEPT
     Indication: Neovascular age-related macular degeneration
     Dosage: 2 MG, EVERY 10 WEEKS, LEFT EYE, FORMULATION: PFS (GERRESHEIMER),
     Dates: start: 20240110, end: 20250827
  2. EYLEA [Suspect]
     Active Substance: AFLIBERCEPT
     Indication: Choroidal neovascularisation
  3. BETADINE [Concomitant]
     Active Substance: POVIDONE-IODINE
     Indication: Product used for unknown indication

REACTIONS (3)
  - Blindness unilateral [Unknown]
  - Retinal vascular disorder [Unknown]
  - Bacterial endophthalmitis [Unknown]

NARRATIVE: CASE EVENT DATE: 20250830
